FAERS Safety Report 22284514 (Version 1)
Quarter: 2023Q2

REPORT INFORMATION
  Report Type: Spontaneous
  Country: CA (occurrence: CA)
  Receive Date: 20230504
  Receipt Date: 20230504
  Transmission Date: 20230722
  Serious: Yes (Other)
  Sender: FDA-Public Use
  Company Number: CA-PFIZER INC-202300179992

PATIENT
  Age: 59 Year
  Sex: Female

DRUGS (5)
  1. SULFASALAZINE [Suspect]
     Active Substance: SULFASALAZINE
     Dosage: 1 G 2X/WEEK
     Route: 065
  2. HUMIRA [Suspect]
     Active Substance: ADALIMUMAB
     Dosage: 40 MG, EVERY 2 WEEKS
  3. IBUPROFEN PM [Concomitant]
     Active Substance: DIPHENHYDRAMINE CITRATE\IBUPROFEN
  4. LORATADINE [Concomitant]
     Active Substance: LORATADINE
  5. ATORVASTATIN [Concomitant]
     Active Substance: ATORVASTATIN
     Dosage: 10 MG

REACTIONS (9)
  - Arthropathy [Unknown]
  - Condition aggravated [Unknown]
  - Colitis [Unknown]
  - Condition aggravated [Unknown]
  - Pollakiuria [Unknown]
  - Thirst [Unknown]
  - Joint swelling [Unknown]
  - Polyuria [Unknown]
  - Polydipsia [Unknown]
